FAERS Safety Report 5743860-4 (Version None)
Quarter: 2008Q2

REPORT INFORMATION
  Report Type: 
  Country: None (occurrence: None)
  Receive Date: 20080516
  Receipt Date: 20080506
  Transmission Date: 20081010
  Serious: Yes (Life-Threatening, Hospitalization)
  Sender: FDA-Public Use
  Company Number: ADE2008-0182

PATIENT
  Age: 50 Year
  Sex: Female

DRUGS (3)
  1. FLUOXETINE HCL [Suspect]
     Dosage: 20MG - ORAL
     Route: 048
     Dates: start: 20061109, end: 20061215
  2. ESTROGENIC SUBSTANCE [Suspect]
     Dosage: TRANSDERMAL
     Route: 062
     Dates: start: 20061201, end: 20061204
  3. ZOLMITRIPTAN [Concomitant]

REACTIONS (13)
  - ANAEMIA [None]
  - ARTHRALGIA [None]
  - CONTUSION [None]
  - CYANOSIS [None]
  - EYE SWELLING [None]
  - JOINT STIFFNESS [None]
  - JOINT SWELLING [None]
  - NAIL DISORDER [None]
  - PLATELET COUNT DECREASED [None]
  - RASH [None]
  - SWELLING FACE [None]
  - SYNOVITIS [None]
  - URTICARIA [None]
